FAERS Safety Report 8316541-0 (Version None)
Quarter: 2012Q2

REPORT INFORMATION
  Report Type: 
  Country: None (occurrence: None)
  Receive Date: 20120427
  Receipt Date: 20120420
  Transmission Date: 20120825
  Serious: Yes (Hospitalization)
  Sender: FDA-Public Use
  Company Number: PHHY2012AU034527

PATIENT
  Age: 88 Year
  Sex: Female

DRUGS (4)
  1. CALCIUM                            /01483701/ [Suspect]
  2. RIVASTIGMINE [Suspect]
  3. CARBAMAZEPINE [Suspect]
  4. ROSUVASTATIN [Suspect]

REACTIONS (5)
  - LIDDLE'S SYNDROME [None]
  - FEMORAL NECK FRACTURE [None]
  - FALL [None]
  - HYPOKALAEMIA [None]
  - HYPERTENSION [None]
